FAERS Safety Report 16207873 (Version 1)
Quarter: 2019Q2

REPORT INFORMATION
  Report Type: Spontaneous
  Country: TR (occurrence: TR)
  Receive Date: 20190417
  Receipt Date: 20190417
  Transmission Date: 20190711
  Serious: Yes (Other)
  Sender: FDA-Public Use
  Company Number: TR-PFIZER INC-2019161220

PATIENT
  Age: 20 Year
  Sex: Male
  Weight: 60 kg

DRUGS (1)
  1. VFEND [Suspect]
     Active Substance: VORICONAZOLE
     Indication: FUNGAL INFECTION
     Dosage: 400 MG, UNK
     Route: 042
     Dates: start: 20190320, end: 20190320

REACTIONS (7)
  - Vision blurred [Recovered/Resolved]
  - Optic neuritis [Unknown]
  - Ocular discomfort [Recovered/Resolved]
  - Eye pain [Unknown]
  - Dizziness [Recovered/Resolved]
  - Papilloedema [Unknown]
  - Visual impairment [Unknown]

NARRATIVE: CASE EVENT DATE: 20190320
